FAERS Safety Report 4355362-0 (Version None)
Quarter: 2004Q2

REPORT INFORMATION
  Report Type: 
  Country: None (occurrence: None)
  Receive Date: 20040510
  Receipt Date: 20040427
  Transmission Date: 20050107
  Serious: Yes (Other)
  Sender: FDA-Public Use
  Company Number: PHBS2004TR05657

PATIENT
  Age: 40 Year
  Sex: Female
  Weight: 66 kg

DRUGS (1)
  1. ZELMAC [Suspect]
     Route: 065
     Dates: start: 20040422, end: 20040422

REACTIONS (8)
  - EMOTIONAL DISTRESS [None]
  - EYE OEDEMA [None]
  - HEADACHE [None]
  - HYPOTENSION [None]
  - OEDEMA PERIPHERAL [None]
  - PERIORBITAL OEDEMA [None]
  - PHARYNGEAL OEDEMA [None]
  - STRESS SYMPTOMS [None]
